FAERS Safety Report 23396751 (Version 1)
Quarter: 2024Q1

REPORT INFORMATION
  Report Type: Spontaneous
  Country: FI (occurrence: FI)
  Receive Date: 20240112
  Receipt Date: 20240112
  Transmission Date: 20240410
  Serious: Yes (Other)
  Sender: FDA-Public Use
  Company Number: FI-TEVA-VS-3140080

PATIENT
  Age: 42 Year

DRUGS (2)
  1. BUPRENORPHINE [Suspect]
     Active Substance: BUPRENORPHINE
     Route: 062
     Dates: start: 20231223
  2. BUPRENORPHINE [Suspect]
     Active Substance: BUPRENORPHINE
     Dosage: UP TO A DOSE OF 10 MCG
     Route: 062
     Dates: start: 2023, end: 2023

REACTIONS (13)
  - Skin burning sensation [Unknown]
  - Application site vesicles [Unknown]
  - Discharge [Unknown]
  - Device delivery system issue [Unknown]
  - Skin discharge [Unknown]
  - Feeling hot [Unknown]
  - Pruritus [Unknown]
  - Product physical consistency issue [Unknown]
  - Therapeutic response unexpected [Unknown]
  - Fear of death [Unknown]
  - Product adhesion issue [Unknown]
  - Product availability issue [Unknown]
  - Skin erosion [Unknown]

NARRATIVE: CASE EVENT DATE: 20230101
